FAERS Safety Report 4337963-9 (Version None)
Quarter: 2004Q2

REPORT INFORMATION
  Report Type: 
  Country: None (occurrence: None)
  Receive Date: 20040407
  Receipt Date: 20040401
  Transmission Date: 20050107
  Serious: Yes (Other)
  Sender: FDA-Public Use
  Company Number: NZ-JNJFOC-20040400299

PATIENT
  Sex: Male

DRUGS (1)
  1. RISPERDAL [Suspect]

REACTIONS (1)
  - NEUTROPENIA [None]
